FAERS Safety Report 16131673 (Version 1)
Quarter: 2019Q1

REPORT INFORMATION
  Report Type: Spontaneous
  Country: US (occurrence: US)
  Receive Date: 20190225
  Receipt Date: 20190225
  Transmission Date: 20190418
  Serious: Yes (Hospitalization)
  Sender: FDA-Public Use
  Company Number: None

PATIENT
  Age: 61 Year
  Sex: Male

DRUGS (12)
  1. POLYETH GLYC POWDER [Concomitant]
  2. ZOFRAN [Concomitant]
     Active Substance: ONDANSETRON HYDROCHLORIDE
  3. CALCIUM + D3 [Concomitant]
     Active Substance: CALCIUM\CHOLECALCIFEROL
  4. HYCAMTIN [Suspect]
     Active Substance: TOPOTECAN HYDROCHLORIDE
     Indication: NEOPLASM MALIGNANT
     Dosage: ?          OTHER FREQUENCY:4 DAILY X 5;?
     Route: 048
     Dates: start: 20181221
  5. NORCO [Concomitant]
     Active Substance: ACETAMINOPHEN\HYDROCODONE BITARTRATE
  6. DEXAMETHASON [Concomitant]
     Active Substance: DEXAMETHASONE
  7. DILAUDID [Concomitant]
     Active Substance: HYDROMORPHONE HYDROCHLORIDE
  8. MORPHINE [Concomitant]
     Active Substance: MORPHINE
  9. LIPITOR [Concomitant]
     Active Substance: ATORVASTATIN CALCIUM
  10. PREVACID [Concomitant]
     Active Substance: LANSOPRAZOLE
  11. REMERON [Concomitant]
     Active Substance: MIRTAZAPINE
  12. HYCAMTIN [Suspect]
     Active Substance: TOPOTECAN HYDROCHLORIDE
     Indication: NEOPLASM MALIGNANT
     Dosage: ?          OTHER FREQUENCY:2 DAILY X 5;?
     Route: 048
     Dates: start: 20181221

REACTIONS (1)
  - Metastatic neoplasm [None]

NARRATIVE: CASE EVENT DATE: 20190218
